FAERS Safety Report 16066009 (Version 1)
Quarter: 2019Q1

REPORT INFORMATION
  Report Type: Spontaneous
  Country: DE (occurrence: DE)
  Receive Date: 20190313
  Receipt Date: 20190313
  Transmission Date: 20190418
  Serious: Yes (Other)
  Sender: FDA-Public Use
  Company Number: DE-AUROBINDO-AUR-APL-2019-014031

PATIENT

DRUGS (19)
  1. LINEZOLID FILM COATED TABLET [Suspect]
     Active Substance: LINEZOLID
     Indication: PULMONARY TUBERCULOSIS
     Dosage: 600 MILLIGRAM, ONCE A DAY
     Route: 048
     Dates: start: 20170620
  2. DELTYBA [Suspect]
     Active Substance: DELAMANID
     Dosage: 100 MG, BID
     Route: 048
     Dates: start: 20171012, end: 20171230
  3. DEKRISTOL [Concomitant]
     Active Substance: CHOLECALCIFEROL
     Indication: CONSTIPATION
  4. CLOFAZIMINE [Suspect]
     Active Substance: CLOFAZIMINE
     Indication: PULMONARY TUBERCULOSIS
     Dosage: 100 MILLIGRAM, ONCE A DAY
     Route: 048
     Dates: start: 20170718, end: 20170927
  5. TERIZIDONE [Suspect]
     Active Substance: TERIZIDONE
     Indication: PULMONARY TUBERCULOSIS
     Dosage: 150 MILLIGRAM, ONCE A DAY
     Route: 048
     Dates: start: 20171019
  6. PYRIDOXINE [Concomitant]
     Active Substance: PYRIDOXINE
     Indication: VITAMIN B6 DEFICIENCY
     Dosage: 100 MG, 2X/DAY
     Route: 048
     Dates: start: 20170621, end: 20171018
  7. MOXIFLOXACIN. [Suspect]
     Active Substance: MOXIFLOXACIN
     Indication: PULMONARY TUBERCULOSIS
     Dosage: 400 MILLIGRAM, ONCE A DAY
     Route: 048
     Dates: start: 20170603, end: 20170928
  8. DEKRISTOL [Concomitant]
     Active Substance: CHOLECALCIFEROL
     Indication: VITAMIN D DEFICIENCY
     Dosage: 2000 INTERNATIONAL UNIT, EVERY WEEK
     Route: 048
     Dates: start: 20170619
  9. MOXIFLOXACIN. [Suspect]
     Active Substance: MOXIFLOXACIN
     Dosage: 400 MILLIGRAM, ONCE A DAY
     Route: 048
     Dates: start: 20171016
  10. ETHAMBUTOL [Suspect]
     Active Substance: ETHAMBUTOL HYDROCHLORIDE
     Dosage: 1000 MILLIGRAM, ONCE A DAY
     Route: 048
     Dates: start: 20171014
  11. CLOFAZIMINE [Suspect]
     Active Substance: CLOFAZIMINE
     Dosage: 100 MILLIGRAM, ONCE A DAY
     Route: 048
     Dates: start: 20171012
  12. MOXIFLOXACIN. [Suspect]
     Active Substance: MOXIFLOXACIN
     Dosage: 400 MILLIGRAM, ONCE A DAY
     Route: 042
     Dates: start: 20170928, end: 20171015
  13. ETHAMBUTOL [Suspect]
     Active Substance: ETHAMBUTOL HYDROCHLORIDE
     Indication: PRODUCT USED FOR UNKNOWN INDICATION
     Dosage: 1000 MG, QD (500 MG BID)
     Route: 048
     Dates: start: 20170706
  14. PYRAZINAMIDE. [Suspect]
     Active Substance: PYRAZINAMIDE
     Indication: PULMONARY TUBERCULOSIS
     Dosage: 1500 MILLIGRAM, ONCE A DAY
     Route: 048
     Dates: start: 20170524, end: 20170726
  15. TERIZIDONE [Suspect]
     Active Substance: TERIZIDONE
     Dosage: 750 MG, UNK (2X250+1X250)
     Route: 048
     Dates: start: 20171019
  16. PROTIONAMIDE [Suspect]
     Active Substance: PROTIONAMIDE
     Indication: PULMONARY TUBERCULOSIS
     Dosage: 750 MG, (2X250+1X250)
     Route: 048
     Dates: start: 20170618, end: 20170723
  17. DEKRISTOL [Concomitant]
     Active Substance: CHOLECALCIFEROL
     Indication: PROPHYLAXIS
     Dosage: 2000 INTERNATIONAL UNIT, ONCE A DAY
     Route: 048
     Dates: start: 20170607, end: 20170615
  18. DELTYBA [Suspect]
     Active Substance: DELAMANID
     Indication: PULMONARY TUBERCULOSIS
     Dosage: 100 MG, BID
     Route: 048
     Dates: start: 20170712, end: 20170927
  19. PYRIDOXINE [Concomitant]
     Active Substance: PYRIDOXINE
     Indication: PROPHYLAXIS

REACTIONS (2)
  - Helicobacter gastritis [Recovered/Resolved]
  - Bicytopenia [Recovered/Resolved with Sequelae]

NARRATIVE: CASE EVENT DATE: 20170916
